FAERS Safety Report 5266238-9 (Version None)
Quarter: 2007Q1

REPORT INFORMATION
  Report Type: 
  Country: None (occurrence: None)
  Receive Date: 20070315
  Receipt Date: 20070309
  Transmission Date: 20070707
  Serious: Yes (Life-Threatening)
  Sender: FDA-Public Use
  Company Number: JP-JPN-A200700942

PATIENT
  Age: 16 Year
  Sex: Female

DRUGS (1)
  1. RELENZA [Suspect]
     Indication: INFLUENZA
     Dosage: 10MG SEE DOSAGE TEXT
     Route: 055
     Dates: start: 20070302, end: 20070303

REACTIONS (1)
  - FEBRILE CONVULSION [None]
